FAERS Safety Report 16344166 (Version 1)
Quarter: 2019Q2

REPORT INFORMATION
  Report Type: Spontaneous
  Country: PL (occurrence: PL)
  Receive Date: 20190522
  Receipt Date: 20190522
  Transmission Date: 20190711
  Serious: Yes (Hospitalization)
  Sender: FDA-Public Use
  Company Number: PL-PFIZER INC-2019215553

PATIENT
  Age: 50 Year
  Sex: Male

DRUGS (2)
  1. NAVIREL [Suspect]
     Active Substance: VINORELBINE TARTRATE
     Indication: LUNG NEOPLASM MALIGNANT
     Dosage: 57.6 MG, 2X/DAY
     Route: 042
     Dates: start: 20190409, end: 20190416
  2. CARBOPLATIN. [Suspect]
     Active Substance: CARBOPLATIN
     Indication: LUNG NEOPLASM MALIGNANT
     Dosage: 660 MG, 1X/DAY
     Route: 042
     Dates: start: 20190409, end: 20190409

REACTIONS (4)
  - Haemoglobin decreased [Unknown]
  - Neutrophil count decreased [Unknown]
  - Blood test abnormal [Unknown]
  - White blood cell count decreased [Unknown]

NARRATIVE: CASE EVENT DATE: 20190424
